FAERS Safety Report 5065824-9 (Version None)
Quarter: 2006Q3

REPORT INFORMATION
  Report Type: 
  Country: None (occurrence: None)
  Receive Date: 20060726
  Receipt Date: 20060713
  Transmission Date: 20061208
  Serious: Yes (Other)
  Sender: FDA-Public Use
  Company Number: 2006-DE-03598GD

PATIENT
  Age: 45 Year
  Sex: Male

DRUGS (5)
  1. SERTRALINE [Suspect]
  2. TRAZODONE HCL [Suspect]
  3. LINEZOLID [Suspect]
  4. BUPROPION HCL [Suspect]
  5. RISPERIDONE [Concomitant]

REACTIONS (1)
  - SEROTONIN SYNDROME [None]
